FAERS Safety Report 4563061-5 (Version None)
Quarter: 2005Q1

REPORT INFORMATION
  Report Type: 
  Country: None (occurrence: None)
  Receive Date: 20050125
  Receipt Date: 20050121
  Transmission Date: 20050727
  Serious: Yes (Other)
  Sender: FDA-Public Use
  Company Number: PTWYE359621JAN05

PATIENT
  Age: 35 Year
  Sex: Female

DRUGS (3)
  1. EFFEXOR XR [Suspect]
     Dosage: 150 MG 1X PER 1 DAY
     Route: 048
     Dates: start: 20040101
  2. GABAPENTIN [Concomitant]
  3. PROPRANOLOL HYDROCHLORIDE [Concomitant]

REACTIONS (1)
  - DRUG WITHDRAWAL SYNDROME [None]
